FAERS Safety Report 21615014 (Version 1)
Quarter: 2022Q4

REPORT INFORMATION
  Report Type: Spontaneous
  Country: US (occurrence: None)
  Receive Date: 20221116
  Receipt Date: 20221116
  Transmission Date: 20230113
  Serious: Yes (Other)
  Sender: FDA-Public Use
  Company Number: None

PATIENT
  Age: 27 Year
  Sex: Female
  Weight: 72 kg

DRUGS (4)
  1. AMINO ACIDS\MINERALS\VITAMINS [Suspect]
     Active Substance: AMINO ACIDS\MINERALS\VITAMINS
     Indication: Hypovitaminosis
     Dates: start: 20220421, end: 20221116
  2. Compounded T3/T4 [Concomitant]
  3. VITAMIN D [Concomitant]
     Active Substance: VITAMIN D NOS
  4. NALTREXONE [Concomitant]
     Active Substance: NALTREXONE

REACTIONS (1)
  - Injection site pain [None]

NARRATIVE: CASE EVENT DATE: 20221012
